FAERS Safety Report 10177770 (Version 1)
Quarter: 2014Q2

REPORT INFORMATION
  Report Type: Spontaneous
  Country: US (occurrence: US)
  Receive Date: 20140516
  Receipt Date: 20140516
  Transmission Date: 20141212
  Serious: No
  Sender: FDA-Public Use
  Company Number: US-SANOFI-AVENTIS-2013SA076469

PATIENT
  Age: 67 Year
  Sex: Male

DRUGS (1)
  1. APIDRA [Suspect]
     Indication: TYPE 2 DIABETES MELLITUS
     Dosage: FREQUENCY 3X/DAY?PRODUCT START DATE - 3 YEAR AGO DOSE:150 UNIT(S)
     Route: 058

REACTIONS (3)
  - Eye disorder [Unknown]
  - Injection site pain [Unknown]
  - Blood glucose abnormal [Unknown]
